FAERS Safety Report 13737635 (Version 1)
Quarter: 2017Q3

REPORT INFORMATION
  Report Type: Spontaneous
  Country: US (occurrence: US)
  Receive Date: 20170710
  Receipt Date: 20170710
  Transmission Date: 20171127
  Serious: Yes (Other)
  Sender: FDA-Public Use
  Company Number: US-SAOL THERAPEUTICS-2016SAO01025

PATIENT
  Age: 49 Year
  Sex: Female

DRUGS (4)
  1. BACLOFEN. [Suspect]
     Active Substance: BACLOFEN
     Indication: MUSCLE SPASTICITY
     Dosage: 19.86 ?G, \DAY
  2. LIORESAL [Suspect]
     Active Substance: BACLOFEN
     Indication: MULTIPLE SCLEROSIS
  3. BACLOFEN. [Suspect]
     Active Substance: BACLOFEN
     Indication: MULTIPLE SCLEROSIS
  4. LIORESAL [Suspect]
     Active Substance: BACLOFEN
     Indication: MUSCLE SPASTICITY
     Dosage: UNK ?G, \DAY

REACTIONS (6)
  - Incorrect route of drug administration [Unknown]
  - Intervertebral disc protrusion [Unknown]
  - Exostosis [Unknown]
  - Muscle spasticity [Unknown]
  - Overdose [Unknown]
  - Device damage [Unknown]

NARRATIVE: CASE EVENT DATE: 200409
